FAERS Safety Report 13765138 (Version 1)
Quarter: 2017Q3

REPORT INFORMATION
  Report Type: Spontaneous
  Country: IT (occurrence: IT)
  Receive Date: 20170718
  Receipt Date: 20170718
  Transmission Date: 20171127
  Serious: Yes (Hospitalization)
  Sender: FDA-Public Use
  Company Number: IT-PFIZER INC-2099077

PATIENT
  Age: 80 Year
  Sex: Female

DRUGS (3)
  1. LANSOX [Concomitant]
     Active Substance: LANSOPRAZOLE
     Indication: GASTRIC ULCER
     Dosage: 30 MG, UNK
     Route: 048
     Dates: start: 20131110, end: 20131110
  2. HEPARIN SODIUM. [Suspect]
     Active Substance: HEPARIN SODIUM
     Indication: PULMONARY EMBOLISM
     Dosage: 18 IU/KG/HR, DAILY
     Route: 042
     Dates: start: 20131104, end: 20131111
  3. COUMADIN [Suspect]
     Active Substance: WARFARIN SODIUM
     Indication: PULMONARY EMBOLISM
     Dosage: 5 MG, DAILY
     Route: 048
     Dates: start: 20131107, end: 20131108

REACTIONS (1)
  - Anaemia [Recovering/Resolving]

NARRATIVE: CASE EVENT DATE: 20131108
